FAERS Safety Report 7746693-2 (Version None)
Quarter: 2011Q3

REPORT INFORMATION
  Report Type: 
  Country: None (occurrence: None)
  Receive Date: 20110913
  Receipt Date: 20110831
  Transmission Date: 20111222
  Serious: Yes (Hospitalization, Other)
  Sender: FDA-Public Use
  Company Number: CH-JNJFOC-20110900021

PATIENT
  Age: 38 Year
  Sex: Female
  Weight: 90 kg

DRUGS (11)
  1. PREZISTA [Suspect]
     Indication: HIV INFECTION
     Route: 048
     Dates: start: 20110528, end: 20110621
  2. VALPROIC ACID [Suspect]
     Indication: PRODUCT USED FOR UNKNOWN INDICATION
     Route: 041
     Dates: start: 20110608, end: 20110615
  3. DARAPRIM [Concomitant]
     Route: 048
     Dates: start: 20110607, end: 20110622
  4. SULFADIAZINE [Concomitant]
     Route: 048
     Dates: start: 20110607, end: 20110622
  5. FRAGMIN [Concomitant]
     Route: 058
     Dates: start: 20110610
  6. LORAZEPAM [Concomitant]
     Route: 048
     Dates: start: 20110617, end: 20110622
  7. LEUCOVORIN CALCIUM [Concomitant]
     Route: 048
  8. NORVIR [Suspect]
     Indication: HIV INFECTION
     Route: 048
     Dates: start: 20110528, end: 20110621
  9. RETROVIR [Suspect]
     Indication: HIV INFECTION
     Route: 048
     Dates: start: 20110528, end: 20110621
  10. NAVOBAN [Concomitant]
     Route: 048
     Dates: start: 20110611
  11. METOCLOPRAMIDE HYDROCHLORIDE [Concomitant]
     Route: 048
     Dates: start: 20110607, end: 20110622

REACTIONS (6)
  - LYMPHOPENIA [None]
  - ALANINE AMINOTRANSFERASE INCREASED [None]
  - LEUKOPENIA [None]
  - ERYTHROPENIA [None]
  - GAMMA-GLUTAMYLTRANSFERASE INCREASED [None]
  - ASPARTATE AMINOTRANSFERASE INCREASED [None]
